FAERS Safety Report 15015467 (Version 1)
Quarter: 2018Q2

REPORT INFORMATION
  Report Type: Spontaneous
  Country: US (occurrence: US)
  Receive Date: 20180530
  Receipt Date: 20180530
  Transmission Date: 20180711
  Serious: Yes (Hospitalization)
  Sender: FDA-Public Use
  Company Number: None

PATIENT
  Age: 11 Year
  Sex: Female
  Weight: 33.75 kg

DRUGS (1)
  1. TRIAMCINOLONE IN ORABASE [Suspect]
     Active Substance: TRIAMCINOLONE ACETONIDE
     Indication: STOMATITIS
     Route: 049
     Dates: start: 20180529, end: 20180529

REACTIONS (1)
  - Chest discomfort [None]

NARRATIVE: CASE EVENT DATE: 20180529
